FAERS Safety Report 4722427-0 (Version None)
Quarter: 2005Q3

REPORT INFORMATION
  Report Type: 
  Country: None (occurrence: None)
  Receive Date: 20050722
  Receipt Date: 20050414
  Transmission Date: 20060218
  Serious: No
  Sender: FDA-Public Use
  Company Number: US-GLAXOSMITHKLINE-A0554244A

PATIENT
  Age: 76 Year
  Sex: Male

DRUGS (10)
  1. AVANDIA [Suspect]
     Dosage: 8MG TWICE PER DAY
     Route: 048
     Dates: start: 20050120
  2. LIPITOR [Concomitant]
  3. GLUCOPHAGE [Concomitant]
  4. GLIPIZIDE [Concomitant]
  5. ROBAXIN [Concomitant]
  6. DIAVAN [Concomitant]
  7. BUMEX [Concomitant]
  8. LEVOTHYROXINE SODIUM [Concomitant]
  9. METHYLDOPA [Concomitant]
  10. NIFEDIPINE [Concomitant]

REACTIONS (9)
  - ABDOMINAL DISTENSION [None]
  - CHILLS [None]
  - DIARRHOEA [None]
  - JOINT SWELLING [None]
  - NAUSEA [None]
  - NECK PAIN [None]
  - PYREXIA [None]
  - TREMOR [None]
  - VOMITING [None]
